FAERS Safety Report 9803308 (Version 1)
Quarter: 2014Q1

REPORT INFORMATION
  Report Type: Spontaneous
  Country: US (occurrence: None)
  Receive Date: 20140102
  Receipt Date: 20140102
  Transmission Date: 20141002
  Serious: Yes (Hospitalization)
  Sender: FDA-Public Use
  Company Number: UTC-042450

PATIENT
  Age: 48 Year
  Sex: Male
  Weight: 50 kg

DRUGS (1)
  1. REMODULIN (5 MILLIGRAM/MILLILITERS, INJECTION FOR INFUSION) (TREPROSTINIL SODIUM) [Suspect]
     Indication: COR PULMONALE CHRONIC
     Dosage: 59.04 UG/KG (0.041 UG/KG, 1 IN 1 MIN) SUBCUTANEOUS

REACTIONS (2)
  - Nausea [None]
  - Vomiting [None]
